FAERS Safety Report 13941906 (Version 4)
Quarter: 2018Q2

REPORT INFORMATION
  Report Type: Spontaneous
  Country: US (occurrence: US)
  Receive Date: 20170906
  Receipt Date: 20180427
  Transmission Date: 20180711
  Serious: Yes (Hospitalization)
  Sender: FDA-Public Use
  Company Number: US-DSJP-DSU-2017-135257

PATIENT

DRUGS (2)
  1. BENICAR HCT [Suspect]
     Active Substance: HYDROCHLOROTHIAZIDE\OLMESARTAN MEDOXOMIL
     Indication: BLOOD PRESSURE MANAGEMENT
     Dosage: 20/12.5 MG, QD
     Route: 048
     Dates: start: 20090527, end: 20140911
  2. BENICAR HCT [Suspect]
     Active Substance: HYDROCHLOROTHIAZIDE\OLMESARTAN MEDOXOMIL
     Dosage: 40/25MG, QD
     Route: 048
     Dates: start: 20110323, end: 20140911

REACTIONS (6)
  - Gastroenteritis [Recovering/Resolving]
  - Dizziness [Unknown]
  - Gastrointestinal disorder [Recovered/Resolved]
  - Proctalgia [Unknown]
  - Weight decreased [Recovered/Resolved]
  - Muscle spasms [Unknown]

NARRATIVE: CASE EVENT DATE: 200908
